FAERS Safety Report 5985872-1 (Version None)
Quarter: 2008Q4

REPORT INFORMATION
  Report Type: 
  Country: None (occurrence: None)
  Receive Date: 20081209
  Receipt Date: 20081128
  Transmission Date: 20090506
  Serious: Yes (Other)
  Sender: FDA-Public Use
  Company Number: SE-RANBAXY-2008RR-19601

PATIENT
  Age: 86 Year
  Sex: Female

DRUGS (4)
  1. PREDNISOLONE [Suspect]
  2. ASPIRIN [Suspect]
  3. METOPROLOL TARTRATE [Suspect]
  4. MIDAZOLAM HCL [Concomitant]
     Indication: SEDATION

REACTIONS (4)
  - COLITIS COLLAGENOUS [None]
  - GASTROINTESTINAL HAEMORRHAGE [None]
  - GASTROINTESTINAL MUCOSAL DISORDER [None]
  - LACERATION [None]
